FAERS Safety Report 16027419 (Version 1)
Quarter: 2019Q1

REPORT INFORMATION
  Report Type: Spontaneous
  Country: US (occurrence: US)
  Receive Date: 20190304
  Receipt Date: 20190304
  Transmission Date: 20190418
  Serious: Yes (Other)
  Sender: FDA-Public Use
  Company Number: US-PFIZER INC-2019081504

PATIENT
  Age: 64 Year
  Sex: Female
  Weight: 96 kg

DRUGS (1)
  1. LYRICA [Suspect]
     Active Substance: PREGABALIN
     Indication: DIABETIC NEUROPATHY
     Dosage: 50 MG, 3X/DAY
     Route: 048

REACTIONS (7)
  - Vision blurred [Unknown]
  - Bone contusion [Unknown]
  - Gait disturbance [Unknown]
  - Concussion [Unknown]
  - Muscle rupture [Unknown]
  - Back injury [Unknown]
  - Accident [Unknown]

NARRATIVE: CASE EVENT DATE: 20190128
